FAERS Safety Report 7582628-3 (Version None)
Quarter: 2011Q2

REPORT INFORMATION
  Report Type: 
  Country: None (occurrence: None)
  Receive Date: 20110630
  Receipt Date: 20110627
  Transmission Date: 20111010
  Serious: Yes (Other)
  Sender: FDA-Public Use
  Company Number: US-PFIZER INC-2011086432

PATIENT
  Sex: Female

DRUGS (4)
  1. CHANTIX [Suspect]
     Indication: SMOKING CESSATION THERAPY
     Dosage: 1 MG, UNK
     Dates: start: 20080501, end: 20080101
  2. CHANTIX [Suspect]
     Dosage: 1 MG, UNK
     Dates: start: 20090101, end: 20090501
  3. CHANTIX [Suspect]
     Dosage: 1 MG, UNK
     Dates: start: 20100201, end: 20100101
  4. CHANTIX [Suspect]
     Dosage: 1 MG, UNK
     Dates: start: 20081001, end: 20080101

REACTIONS (4)
  - ANXIETY [None]
  - SUICIDAL IDEATION [None]
  - MENTAL DISORDER [None]
  - DEPRESSION [None]
